FAERS Safety Report 18348933 (Version 3)
Quarter: 2020Q4

REPORT INFORMATION
  Report Type: Spontaneous
  Country: US (occurrence: US)
  Receive Date: 20201006
  Receipt Date: 20201117
  Transmission Date: 20210114
  Serious: No
  Sender: FDA-Public Use
  Company Number: US-MYLANLABS-2020M1083553

PATIENT
  Sex: Female
  Weight: 63 kg

DRUGS (2)
  1. ESTRADIOL VAGINAL CREAM USP [Suspect]
     Active Substance: ESTRADIOL
     Indication: URINARY TRACT INFECTION
     Dosage: 1 GRAM
     Route: 065
     Dates: start: 20200831
  2. ESTRADIOL VAGINAL CREAM USP [Suspect]
     Active Substance: ESTRADIOL
     Dosage: 1.5 GRAM, BIWEEKLY
     Route: 065

REACTIONS (5)
  - Product dose omission issue [Unknown]
  - Product quality issue [Not Recovered/Not Resolved]
  - Incorrect dose administered [Unknown]
  - Product label issue [Not Recovered/Not Resolved]
  - Off label use [Not Recovered/Not Resolved]
